FAERS Safety Report 7256204-6 (Version None)
Quarter: 2011Q1

REPORT INFORMATION
  Report Type: 
  Country: None (occurrence: None)
  Receive Date: 20110129
  Receipt Date: 20100519
  Transmission Date: 20110831
  Serious: No
  Sender: FDA-Public Use
  Company Number: US-ABBOTT-10P-163-0645846-00

PATIENT
  Age: 27 Year
  Sex: Female

DRUGS (8)
  1. REQUIP [Concomitant]
     Indication: RESTLESS LEGS SYNDROME
  2. PROGESTERONE [Concomitant]
     Indication: PRODUCT USED FOR UNKNOWN INDICATION
     Dosage: EVERY 3 MONTHS IF PATIENT DOES
  3. HUMIRA [Suspect]
     Indication: CROHN'S DISEASE
     Dates: start: 20100427
  4. HYDROCODONE [Concomitant]
     Indication: PAIN
     Dosage: 7.5/500 1-2 TABLETS EVERY 4-6 HOURS
  5. CYMBALTA [Concomitant]
     Indication: FIBROMYALGIA
  6. VITAMIN D [Concomitant]
     Indication: LABORATORY TEST ABNORMAL
  7. TRAMADOL HCL [Concomitant]
     Indication: ARTHRALGIA
  8. PREDNISONE [Concomitant]
     Indication: PRODUCT USED FOR UNKNOWN INDICATION

REACTIONS (2)
  - PARAESTHESIA [None]
  - INFLAMMATION [None]
